FAERS Safety Report 15818648 (Version 4)
Quarter: 2019Q1

REPORT INFORMATION
  Report Type: Spontaneous
  Country: DE (occurrence: DE)
  Receive Date: 20190113
  Receipt Date: 20190329
  Transmission Date: 20190417
  Serious: Yes (Hospitalization, Other)
  Sender: FDA-Public Use
  Company Number: PHHY2019DE005383

PATIENT
  Sex: Female
  Weight: 75 kg

DRUGS (8)
  1. VALSARTAN HEXAL [Suspect]
     Active Substance: VALSARTAN
     Indication: ESSENTIAL HYPERTENSION
     Dosage: 80 MG, QD (1 TABLET PER DAY) (MORNING)
     Route: 065
     Dates: start: 20140926, end: 201806
  2. PANTOZOL [Concomitant]
     Active Substance: PANTOPRAZOLE SODIUM
     Indication: PRODUCT USED FOR UNKNOWN INDICATION
     Dosage: 40 MG, BID (MORNING AND EVENING)
     Route: 065
  3. PANTOZOL [Concomitant]
     Active Substance: PANTOPRAZOLE SODIUM
     Dosage: 40 MG, QD (AS NEEDED)
     Route: 065
  4. DEKRISTOL [Concomitant]
     Active Substance: CHOLECALCIFEROL
     Indication: PRODUCT USED FOR UNKNOWN INDICATION
     Dosage: 20000 IU, EVERY 14 DAYS
     Route: 065
  5. FOSTER [Concomitant]
     Active Substance: BECLOMETHASONE\FORMOTEROL
     Indication: ASTHMA
     Dosage: 1 DF(PUFF), QD (MORNING)
     Route: 065
  6. RIOPAN [Concomitant]
     Indication: PRODUCT USED FOR UNKNOWN INDICATION
     Dosage: UNK UNK, PRN
     Route: 065
  7. IODIDE [Concomitant]
     Active Substance: IODINE
     Indication: PRODUCT USED FOR UNKNOWN INDICATION
     Dosage: 0.5 DF, QD (MORNING)
     Route: 065
  8. DIOVAN [Concomitant]
     Active Substance: VALSARTAN
     Indication: PRODUCT USED FOR UNKNOWN INDICATION
     Dosage: 80 MG, QD
     Route: 065

REACTIONS (25)
  - Large intestine polyp [Unknown]
  - Hiatus hernia [Unknown]
  - Allergy to metals [Unknown]
  - Cough [Unknown]
  - Colon cancer [Unknown]
  - Mucosal haemorrhage [Unknown]
  - Vomiting [Unknown]
  - Gastric mucosa erythema [Unknown]
  - Cardiac failure [Unknown]
  - Nephritis [Unknown]
  - Haemorrhoids [Unknown]
  - Diverticulum intestinal [Unknown]
  - Gastrointestinal carcinoma [Unknown]
  - Gastritis erosive [Unknown]
  - Chest discomfort [Unknown]
  - Nasopharyngitis [Unknown]
  - Colon neoplasm [Unknown]
  - Change of bowel habit [Unknown]
  - Appendicitis [Unknown]
  - Cardiomegaly [Unknown]
  - Renal cyst [Unknown]
  - Diarrhoea [Unknown]
  - Dehydration [Unknown]
  - Weight decreased [Unknown]
  - General physical health deterioration [Unknown]

NARRATIVE: CASE EVENT DATE: 2015
